FAERS Safety Report 5932915-7 (Version None)
Quarter: 2008Q4

REPORT INFORMATION
  Report Type: 
  Country: None (occurrence: None)
  Receive Date: 20081027
  Receipt Date: 20081027
  Transmission Date: 20090506
  Serious: Yes (Disabling)
  Sender: FDA-Public Use
  Company Number: None

PATIENT
  Age: 59 Year
  Sex: Female
  Weight: 63.5036 kg

DRUGS (1)
  1. ARICEPT [Suspect]
     Indication: COGNITIVE DISORDER
     Dosage: DAILY
     Dates: start: 20080301, end: 20080930

REACTIONS (2)
  - MIDDLE INSOMNIA [None]
  - MUSCLE SPASMS [None]
